FAERS Safety Report 25091154 (Version 1)
Quarter: 2025Q1

REPORT INFORMATION
  Report Type: Spontaneous
  Country: FR (occurrence: FR)
  Receive Date: 20250318
  Receipt Date: 20250318
  Transmission Date: 20250409
  Serious: Yes (Other)
  Sender: MYLAN
  Company Number: None

PATIENT
  Age: 22 Year
  Sex: Female
  Weight: 70 kg

DRUGS (4)
  1. SERTRALINE [Suspect]
     Active Substance: SERTRALINE HYDROCHLORIDE
     Indication: Depression
     Dosage: 50 MILLIGRAM, QD (50 MG PER DAY)
     Dates: start: 20240506, end: 20250207
  2. SERTRALINE [Suspect]
     Active Substance: SERTRALINE HYDROCHLORIDE
     Dosage: 50 MILLIGRAM, QD (50 MG PER DAY)
     Route: 048
     Dates: start: 20240506, end: 20250207
  3. SERTRALINE [Suspect]
     Active Substance: SERTRALINE HYDROCHLORIDE
     Dosage: 50 MILLIGRAM, QD (50 MG PER DAY)
     Route: 048
     Dates: start: 20240506, end: 20250207
  4. SERTRALINE [Suspect]
     Active Substance: SERTRALINE HYDROCHLORIDE
     Dosage: 50 MILLIGRAM, QD (50 MG PER DAY)
     Dates: start: 20240506, end: 20250207

REACTIONS (2)
  - Retinal injury [Not Recovered/Not Resolved]
  - Angle closure glaucoma [Not Recovered/Not Resolved]

NARRATIVE: CASE EVENT DATE: 20250202
